FAERS Safety Report 10353048 (Version 2)
Quarter: 2014Q3

REPORT INFORMATION
  Report Type: Spontaneous
  Country: US (occurrence: US)
  Receive Date: 20140730
  Receipt Date: 20140730
  Transmission Date: 20150326
  Serious: No
  Sender: FDA-Public Use
  Company Number: US-ABBVIE-13P-163-1143874-00

PATIENT
  Age: 51 Year
  Sex: Female
  Weight: 55.39 kg

DRUGS (13)
  1. SYNTHROID [Suspect]
     Active Substance: LEVOTHYROXINE SODIUM
     Indication: THYROIDECTOMY
     Dosage: ALTERNATING 100 MCG AND 88 MCG DAILY
     Route: 048
     Dates: start: 201306, end: 20130905
  2. MAGNESIUM [Suspect]
     Active Substance: MAGNESIUM
     Indication: ADVERSE DRUG REACTION
     Dates: start: 201308
  3. L-THEANINE [Suspect]
     Active Substance: DIETARY SUPPLEMENT
     Indication: ADVERSE DRUG REACTION
     Dates: start: 201308
  4. SYNTHROID [Suspect]
     Active Substance: LEVOTHYROXINE SODIUM
     Dosage: ALTERNATING 100 MCG AND 88 MCG DAILY
     Route: 048
     Dates: start: 201306, end: 20130905
  5. QUERCETIN [Suspect]
     Active Substance: QUERCETIN
     Indication: ADVERSE DRUG REACTION
     Dates: start: 201308
  6. SYNTHROID [Suspect]
     Active Substance: LEVOTHYROXINE SODIUM
     Indication: THYROIDECTOMY
     Route: 048
     Dates: start: 20130905
  7. SYNTHROID [Suspect]
     Active Substance: LEVOTHYROXINE SODIUM
     Route: 048
     Dates: start: 201306, end: 201309
  8. MELATONIN [Suspect]
     Active Substance: MELATONIN
     Indication: ADVERSE DRUG REACTION
     Dates: start: 201308
  9. SYNTHROID [Suspect]
     Active Substance: LEVOTHYROXINE SODIUM
     Indication: THYROIDECTOMY
     Route: 048
     Dates: start: 201206, end: 201306
  10. PROBIOTICS [Suspect]
     Active Substance: PROBIOTICS NOS
     Indication: ADVERSE DRUG REACTION
     Dates: start: 201308
  11. OMEGA 3 FISH OIL [Suspect]
     Active Substance: FISH OIL\OMEGA-3 FATTY ACIDS
     Indication: ADVERSE DRUG REACTION
     Dates: start: 201308
  12. VITAMIN D [Suspect]
     Active Substance: CHOLECALCIFEROL
     Indication: ADVERSE DRUG REACTION
     Dates: start: 201308
  13. CALCIUM CITRATE [Suspect]
     Active Substance: CALCIUM CITRATE
     Indication: ADVERSE DRUG REACTION
     Dates: start: 201308

REACTIONS (10)
  - Arthralgia [Not Recovered/Not Resolved]
  - Dry mouth [Not Recovered/Not Resolved]
  - Insomnia [Not Recovered/Not Resolved]
  - Dry skin [Not Recovered/Not Resolved]
  - Constipation [Not Recovered/Not Resolved]
  - Alopecia [Not Recovered/Not Resolved]
  - Anxiety [Not Recovered/Not Resolved]
  - Drug interaction [Not Recovered/Not Resolved]
  - Blood thyroid stimulating hormone increased [Not Recovered/Not Resolved]
  - Dry eye [Not Recovered/Not Resolved]

NARRATIVE: CASE EVENT DATE: 201206
